FAERS Safety Report 5032904-3 (Version None)
Quarter: 2006Q2

REPORT INFORMATION
  Report Type: 
  Country: None (occurrence: None)
  Receive Date: 20060622
  Receipt Date: 20051129
  Transmission Date: 20061013
  Serious: Yes (Hospitalization)
  Sender: FDA-Public Use
  Company Number: PHNU2005DE03929

PATIENT
  Sex: Female

DRUGS (2)
  1. ZOMETA [Suspect]
     Indication: OSTEOPOROSIS
     Dosage: 4 MG, 4 TIMES YEARLY
     Dates: start: 20030101
  2. THOMAPYRIN [Suspect]
     Dosage: HIGH DOSES

REACTIONS (4)
  - DRUG ABUSER [None]
  - NEPHROPATHY TOXIC [None]
  - OTITIS MEDIA [None]
  - RENAL IMPAIRMENT [None]
